FAERS Safety Report 9934229 (Version 1)
Quarter: 2014Q1

REPORT INFORMATION
  Report Type: Spontaneous
  Country: US (occurrence: US)
  Receive Date: 20140228
  Receipt Date: 20140228
  Transmission Date: 20141002
  Serious: Yes (Other)
  Sender: FDA-Public Use
  Company Number: US-JNJFOC-20140213906

PATIENT
  Age: 68 Year
  Sex: Male
  Weight: 111.13 kg

DRUGS (7)
  1. INVOKANA [Suspect]
     Indication: TYPE 2 DIABETES MELLITUS
     Route: 048
     Dates: start: 201312, end: 201401
  2. WARFARIN [Concomitant]
     Indication: ANTICOAGULANT THERAPY
     Route: 048
  3. WARFARIN [Concomitant]
     Indication: ANTICOAGULANT THERAPY
     Route: 048
  4. GLIMEPIRIDE [Concomitant]
     Indication: TYPE 2 DIABETES MELLITUS
     Route: 048
  5. LISINOPRIL [Concomitant]
     Indication: TYPE 2 DIABETES MELLITUS
     Route: 048
  6. SIMVASTATIN [Concomitant]
     Indication: TYPE 2 DIABETES MELLITUS
     Route: 048
  7. METFORMIN [Concomitant]
     Indication: TYPE 2 DIABETES MELLITUS
     Route: 048

REACTIONS (3)
  - Rectal haemorrhage [Recovered/Resolved]
  - Painful defaecation [Recovered/Resolved]
  - Adverse event [Recovered/Resolved]
